FAERS Safety Report 10978281 (Version 1)
Quarter: 2015Q2

REPORT INFORMATION
  Report Type: Spontaneous
  Country: DZ (occurrence: DZ)
  Receive Date: 20150402
  Receipt Date: 20150402
  Transmission Date: 20150821
  Serious: Yes (Other)
  Sender: FDA-Public Use
  Company Number: DZ-MYLANLABS-2015M1009333

PATIENT

DRUGS (5)
  1. OXALIPLATIN. [Suspect]
     Active Substance: OXALIPLATIN
     Indication: RECTOSIGMOID CANCER
     Dosage: 235 MG, UNK
     Dates: start: 20150111
  2. FOLINIC ACID [Suspect]
     Active Substance: LEUCOVORIN
     Indication: RECTOSIGMOID CANCER
     Dosage: UNK
     Dates: start: 20150111
  3. BEVACIZUMAB [Suspect]
     Active Substance: BEVACIZUMAB
     Indication: RECTOSIGMOID CANCER
     Dosage: UNK
     Dates: start: 20150111
  4. OXALIPLATIN. [Suspect]
     Active Substance: OXALIPLATIN
     Dosage: 235 MG, UNK
     Dates: start: 20150222
  5. 5 FU [Suspect]
     Active Substance: FLUOROURACIL
     Indication: RECTOSIGMOID CANCER
     Dosage: UNK
     Dates: start: 20150111

REACTIONS (5)
  - Pruritus [Recovered/Resolved]
  - Rash generalised [Recovered/Resolved]
  - Paraesthesia oral [Recovered/Resolved]
  - Dyspnoea [Recovered/Resolved]
  - Paraesthesia [Recovered/Resolved]

NARRATIVE: CASE EVENT DATE: 20150219
